APPROVED DRUG PRODUCT: FLUMAZENIL
Active Ingredient: FLUMAZENIL
Strength: 1MG/10ML (0.1MG/ML)
Dosage Form/Route: INJECTABLE;INJECTION
Application: A078595 | Product #002
Applicant: RISING PHARMA HOLDING INC
Approved: May 13, 2008 | RLD: No | RS: No | Type: DISCN